FAERS Safety Report 25676502 (Version 4)
Quarter: 2025Q4

REPORT INFORMATION
  Report Type: Report from Study
  Country: BR (occurrence: BR)
  Receive Date: 20250813
  Receipt Date: 20251103
  Transmission Date: 20260117
  Serious: Yes (Other)
  Sender: NOVARTIS
  Company Number: BR-002147023-NVSC2025BR127834

PATIENT
  Age: 51 Year
  Sex: Female
  Weight: 75 kg

DRUGS (10)
  1. KISQALI [Suspect]
     Active Substance: RIBOCICLIB SUCCINATE
     Indication: Breast cancer female
     Dosage: 3 DOSAGE FORM (200 MG) (THREE TABLETS)
     Route: 048
     Dates: start: 202411
  2. KISQALI [Suspect]
     Active Substance: RIBOCICLIB SUCCINATE
     Indication: Breast cancer metastatic
     Dosage: 2 DOSAGE FORM, OTHER (200 MG), DOSE REDUCTION, FOR 21  CONSECUTIV E DAYS;  TAKE A 7- DAY BREAK AND R
     Route: 065
     Dates: start: 202505
  3. KISQALI [Suspect]
     Active Substance: RIBOCICLIB SUCCINATE
     Indication: Hormone receptor positive HER2 negative breast cancer
  4. FEMARA [Suspect]
     Active Substance: LETROZOLE
     Indication: Breast cancer metastatic
     Dosage: 1 DOSAGE FORM, QD (2.5 MG)
     Route: 048
     Dates: start: 202411
  5. FEMARA [Suspect]
     Active Substance: LETROZOLE
     Indication: Bone lesion
  6. FEMARA [Suspect]
     Active Substance: LETROZOLE
     Indication: Pulmonary mass
  7. GLIFAGE [Concomitant]
     Active Substance: METFORMIN HYDROCHLORIDE
     Indication: Glucose tolerance impaired
     Dosage: 500 MG, 2 A DAY
     Route: 065
  8. RAMIPRIL [Concomitant]
     Active Substance: RAMIPRIL
     Indication: Hypertension
     Dosage: 2.5 MG
     Route: 065
  9. VENLAFAXINE HYDROCHLORIDE [Concomitant]
     Active Substance: VENLAFAXINE HYDROCHLORIDE
     Indication: Menopausal symptoms
     Dosage: 37.5 MG
     Route: 065
  10. HYDROCHLOROTHIAZIDE [Concomitant]
     Active Substance: HYDROCHLOROTHIAZIDE
     Indication: Nephrolithiasis
     Dosage: 25 MG
     Route: 065

REACTIONS (4)
  - Neuropathy peripheral [Recovered/Resolved]
  - Neuropathic pruritus [Recovered/Resolved]
  - Irritability [Recovered/Resolved]
  - Skin toxicity [Unknown]

NARRATIVE: CASE EVENT DATE: 20250201
